FAERS Safety Report 5242611-X (Version None)
Quarter: 2007Q1

REPORT INFORMATION
  Report Type: 
  Country: None (occurrence: None)
  Receive Date: 20070214
  Receipt Date: 20070201
  Transmission Date: 20070707
  Serious: Yes (Death, Hospitalization)
  Sender: FDA-Public Use
  Company Number: 2007-00237

PATIENT
  Age: 74 Year
  Sex: Male
  Weight: 65.8 kg

DRUGS (2)
  1. VELCADE [Suspect]
     Indication: TONGUE CANCER METASTATIC
     Dosage: 2.90 MG, INTRAVENOUS
     Route: 042
     Dates: end: 20051013
  2. TAXOTERE [Suspect]
     Indication: TONGUE CANCER METASTATIC
     Dosage: 74.00 MG, INTRAVENOUS
     Route: 042
     Dates: end: 20051013

REACTIONS (3)
  - DISEASE PROGRESSION [None]
  - PAIN [None]
  - PNEUMONIA [None]
